FAERS Safety Report 6179542-7 (Version None)
Quarter: 2009Q2

REPORT INFORMATION
  Report Type: 
  Country: None (occurrence: None)
  Receive Date: 20090501
  Receipt Date: 20090501
  Transmission Date: 20091009
  Serious: Yes (Other)
  Sender: FDA-Public Use
  Company Number: None

PATIENT
  Sex: Male
  Weight: 90.039 kg

DRUGS (3)
  1. LIPITOR [Suspect]
     Indication: BLOOD CHOLESTEROL INCREASED
     Dosage: 1 X DAILY D@ 10MG PO
     Route: 048
  2. TYLENOL [Concomitant]
  3. FISH OIL [Concomitant]

REACTIONS (2)
  - MUSCULAR WEAKNESS [None]
  - MYALGIA [None]
